FAERS Safety Report 9074953 (Version 2)
Quarter: 2013Q1

REPORT INFORMATION
  Report Type: Report from Study
  Country: JP (occurrence: JP)
  Receive Date: 20130129
  Receipt Date: 20130301
  Transmission Date: 20140127
  Serious: Yes (Death, Other)
  Sender: FDA-Public Use
  Company Number: JP-ACTELION-A-CH2013-78290

PATIENT
  Age: 20 Month
  Sex: Male
  Weight: 1.7 kg

DRUGS (10)
  1. TRACLEER [Suspect]
     Indication: PULMONARY HYPERTENSION
     Dosage: 0.45 MG, BID
     Route: 048
     Dates: start: 20090228, end: 20090311
  2. TRACLEER [Suspect]
     Dosage: 1.8 MG, BID
     Route: 048
     Dates: start: 20090312, end: 20090327
  3. TRACLEER [Suspect]
     Dosage: 3.6 MG, BID
     Route: 048
     Dates: start: 20090328, end: 20090526
  4. TRACLEER [Suspect]
     Dosage: 12.5 MG, BID
     Route: 048
     Dates: start: 20090527, end: 20090610
  5. TRACLEER [Suspect]
     Dosage: 17 MG, BID
     Route: 048
     Dates: start: 20090611, end: 20091111
  6. TRACLEER [Suspect]
     Dosage: 24.5 MG, BID
     Route: 048
     Dates: start: 20091112, end: 20101008
  7. SILDENAFIL CITRATE [Concomitant]
  8. UBIDECARENONE [Concomitant]
  9. PROCATEROL HYDROCHLORIDE [Concomitant]
  10. SPIRONOLACTONE [Concomitant]

REACTIONS (6)
  - Pulmonary hypertension [Fatal]
  - Condition aggravated [Fatal]
  - Aspartate aminotransferase increased [Not Recovered/Not Resolved]
  - Cardiac failure [Not Recovered/Not Resolved]
  - Concomitant disease aggravated [Not Recovered/Not Resolved]
  - Upper respiratory tract inflammation [Unknown]
